FAERS Safety Report 22519969 (Version 1)
Quarter: 2023Q2

REPORT INFORMATION
  Report Type: Spontaneous
  Country: SE (occurrence: None)
  Receive Date: 20230605
  Receipt Date: 20230605
  Transmission Date: 20230722
  Serious: Yes (Hospitalization)
  Sender: FDA-Public Use
  Company Number: 2023A124635

PATIENT
  Age: 21 Year
  Sex: Female

DRUGS (2)
  1. QUETIAPINE [Suspect]
     Active Substance: QUETIAPINE
     Dosage: 8 QUETIAPIN DEPOT
     Dates: start: 20230516, end: 20230516
  2. ZOPICLONE [Suspect]
     Active Substance: ZOPICLONE
     Dosage: 8 ZOPICLONE
     Dates: start: 20230516, end: 20230516

REACTIONS (4)
  - Intentional self-injury [Unknown]
  - Toxicity to various agents [Unknown]
  - Atrioventricular block second degree [Recovered/Resolved]
  - Fatigue [Unknown]

NARRATIVE: CASE EVENT DATE: 20230516
